FAERS Safety Report 12376711 (Version 2)
Quarter: 2016Q2

REPORT INFORMATION
  Report Type: Report from Study
  Country: US (occurrence: US)
  Receive Date: 20160517
  Receipt Date: 20160517
  Transmission Date: 20160815
  Serious: No
  Sender: FDA-Public Use
  Company Number: US-MALLINCKRODT-T201503061

PATIENT
  Sex: Female

DRUGS (2)
  1. REPOSITORY CORTICOTROPIN INJECTION [Suspect]
     Active Substance: CORTICOTROPIN
     Indication: ANKYLOSING SPONDYLITIS
     Dosage: 80 UNITS, TWICE WKLY
     Route: 058
     Dates: start: 20150423
  2. REPOSITORY CORTICOTROPIN INJECTION [Suspect]
     Active Substance: CORTICOTROPIN
     Dosage: 56 UNITS EVERY 3 OR 4 DAYS
     Route: 058
     Dates: start: 20150423

REACTIONS (2)
  - Drug effect decreased [Unknown]
  - Injection site bruising [Unknown]
